FAERS Safety Report 24363808 (Version 1)
Quarter: 2024Q3

REPORT INFORMATION
  Report Type: Spontaneous
  Country: ES (occurrence: ES)
  Receive Date: 20240925
  Receipt Date: 20240925
  Transmission Date: 20241017
  Serious: Yes (Hospitalization)
  Sender: PFIZER
  Company Number: None

PATIENT
  Age: 89 Year
  Sex: Female

DRUGS (7)
  1. METHYLPREDNISOLONE SODIUM SUCCINATE [Suspect]
     Active Substance: METHYLPREDNISOLONE SODIUM SUCCINATE
     Dosage: 60 MG, SINGLE
     Route: 042
     Dates: start: 20240901, end: 20240901
  2. OMEPRAZOLE [Concomitant]
     Active Substance: OMEPRAZOLE
     Dosage: 20 MG, 1X/DAY
     Route: 048
     Dates: start: 20201009
  3. ROCALTROL [Concomitant]
     Active Substance: CALCITRIOL
     Dosage: 1.25 UG, WEEKLY
     Route: 048
     Dates: start: 20230727
  4. AMOXICILLIN TRIHYDRATE [Concomitant]
     Active Substance: AMOXICILLIN
     Indication: Submaxillary gland enlargement
     Dosage: 750 MG, 3X/DAY
     Route: 048
     Dates: start: 20240831, end: 20240901
  5. DOXAZOSINA NEO CINFA [Concomitant]
     Dosage: 4 MG, 1X/DAY
     Route: 048
     Dates: start: 20230727
  6. MANIDIPINO CINFA [Concomitant]
     Dosage: 20 MG, 1X/DAY
     Route: 048
     Dates: start: 20230727
  7. LORMETAZEPAM CINFA [Concomitant]
     Dosage: 2 MG, 1X/DAY
     Route: 048
     Dates: start: 20120207

REACTIONS (1)
  - Hypomania [Recovered/Resolved]

NARRATIVE: CASE EVENT DATE: 20240901
